FAERS Safety Report 9672093 (Version 3)
Quarter: 2014Q2

REPORT INFORMATION
  Report Type: Spontaneous
  Country: US (occurrence: US)
  Receive Date: 20131106
  Receipt Date: 20140422
  Transmission Date: 20141212
  Serious: Yes (Death)
  Sender: FDA-Public Use
  Company Number: US-CELGENEUS-163-21880-13110554

PATIENT
  Age: 75 Year
  Sex: Female
  Weight: 59.7 kg

DRUGS (6)
  1. REVLIMID [Suspect]
     Indication: PLASMA CELL MYELOMA
     Dosage: 2.5 MILLIGRAM
     Route: 048
     Dates: start: 20130702, end: 201310
  2. LEVOTHYROID [Concomitant]
     Indication: HYPOTHYROIDISM
     Dosage: 0.001
     Route: 048
     Dates: start: 20130426, end: 201310
  3. SPIRIVA [Concomitant]
     Indication: CHRONIC OBSTRUCTIVE PULMONARY DISEASE
     Route: 065
     Dates: start: 20130926, end: 201310
  4. NEXIUM [Concomitant]
     Indication: GASTROOESOPHAGEAL REFLUX DISEASE
     Route: 065
     Dates: start: 20130830, end: 201310
  5. ZOCOR [Concomitant]
     Indication: HYPERTENSION
     Route: 065
     Dates: start: 20130426, end: 201310
  6. PACERONE [Concomitant]
     Indication: HYPERTENSION
     Route: 065
     Dates: start: 20130426, end: 201310

REACTIONS (1)
  - Renal failure [Fatal]
